FAERS Safety Report 23222885 (Version 1)
Quarter: 2023Q4

REPORT INFORMATION
  Report Type: Spontaneous
  Country: ES (occurrence: ES)
  Receive Date: 20231123
  Receipt Date: 20231123
  Transmission Date: 20240110
  Serious: Yes (Life-Threatening, Hospitalization, Other)
  Sender: FDA-Public Use
  Company Number: ES-AEMPS-1409739

PATIENT
  Age: 22 Year
  Sex: Female
  Weight: 66.8 kg

DRUGS (4)
  1. ACETAMINOPHEN [Suspect]
     Active Substance: ACETAMINOPHEN
     Indication: Product used for unknown indication
     Dosage: 40 MILLIGRAM, IN TOTAL, 40G
     Route: 048
     Dates: start: 20230717, end: 20230717
  2. IBUPROFEN [Concomitant]
     Active Substance: IBUPROFEN
     Indication: Product used for unknown indication
     Dosage: 6500 MILLIGRAM, IN TOTAL
     Route: 048
     Dates: start: 20230717, end: 20230717
  3. ALPRAZOLAM [Concomitant]
     Active Substance: ALPRAZOLAM
     Indication: Product used for unknown indication
     Dosage: 12MG
     Route: 048
     Dates: start: 20230717, end: 20230717
  4. VALPROIC ACID [Concomitant]
     Active Substance: VALPROIC ACID
     Indication: Product used for unknown indication
     Dosage: UNKNOWN
     Route: 048
     Dates: start: 20230717, end: 20230717

REACTIONS (2)
  - Analgesic drug level increased [Recovered/Resolved]
  - Suicide attempt [Unknown]

NARRATIVE: CASE EVENT DATE: 20230717
